FAERS Safety Report 5092890-7 (Version None)
Quarter: 2006Q3

REPORT INFORMATION
  Report Type: 
  Country: None (occurrence: None)
  Receive Date: 20060828
  Receipt Date: 20060817
  Transmission Date: 20061208
  Serious: Yes (Hospitalization)
  Sender: FDA-Public Use
  Company Number: 2006-146919-NL

PATIENT
  Age: 36 Year
  Sex: Male

DRUGS (3)
  1. DEXAMETHASONE [Suspect]
     Indication: TESTIS CANCER
     Dosage: 8 MG ONCE/4 MG QD
  2. CISPLATIN [Suspect]
     Indication: TESTIS CANCER
     Dosage: 40 MG/M2
  3. ETOPOSIDE [Suspect]
     Indication: TESTIS CANCER

REACTIONS (3)
  - GAIT DISTURBANCE [None]
  - GROIN PAIN [None]
  - OSTEONECROSIS [None]
